FAERS Safety Report 6713863-1 (Version None)
Quarter: 2010Q2

REPORT INFORMATION
  Report Type: 
  Country: None (occurrence: None)
  Receive Date: 20100506
  Receipt Date: 20100430
  Transmission Date: 20101027
  Serious: Yes (Other)
  Sender: FDA-Public Use
  Company Number: US-MERCK-1004USA04787

PATIENT
  Age: 65 Year
  Sex: Male
  Weight: 91 kg

DRUGS (9)
  1. COZAAR [Suspect]
     Indication: HYPERTENSION
     Route: 048
     Dates: end: 20090101
  2. DEPO-TESTOSTERONE [Suspect]
     Indication: HORMONE REPLACEMENT THERAPY
     Route: 065
     Dates: end: 20090101
  3. VIAGRA [Suspect]
     Indication: ERECTILE DYSFUNCTION
     Route: 048
  4. INSULIN [Concomitant]
     Indication: DIABETES MELLITUS
     Route: 065
  5. INSULIN [Concomitant]
     Route: 065
  6. ASPIRIN [Concomitant]
     Indication: CARDIOVASCULAR EVENT PROPHYLAXIS
     Route: 048
  7. DOXYCYCLINE [Concomitant]
     Indication: BRONCHITIS CHRONIC
     Route: 065
  8. LISINOPRIL [Concomitant]
     Indication: HYPERTENSION
     Route: 048
     Dates: start: 20090101
  9. HYDROMORPHONE [Concomitant]
     Indication: PAIN
     Route: 065

REACTIONS (3)
  - DRUG INEFFECTIVE [None]
  - HAEMOGLOBIN INCREASED [None]
  - SPERM COUNT DECREASED [None]
